FAERS Safety Report 10974651 (Version 1)
Quarter: 2015Q2

REPORT INFORMATION
  Report Type: Spontaneous
  Country: FR (occurrence: FR)
  Receive Date: 20150401
  Receipt Date: 20150401
  Transmission Date: 20150821
  Serious: Yes (Hospitalization)
  Sender: FDA-Public Use
  Company Number: FR-009507513-1503FRA013992

PATIENT
  Age: 60 Year
  Sex: Male

DRUGS (8)
  1. INTRON A [Suspect]
     Active Substance: INTERFERON ALFA-2B
     Indication: KAPOSI^S SARCOMA
     Dosage: 3 MILLION IU, 3 TIMES
     Route: 058
     Dates: start: 201406, end: 201412
  2. INEXIUM (ESOMEPRAZOLE MAGNESIUM) [Concomitant]
     Active Substance: ESOMEPRAZOLE MAGNESIUM
     Dosage: UNK
  3. CARDENSIEL [Concomitant]
     Active Substance: BISOPROLOL FUMARATE
     Dosage: UNK
  4. VELMETIA [Concomitant]
     Active Substance: METFORMIN\SITAGLIPTIN
     Dosage: UNK
     Route: 048
  5. CRESTOR [Concomitant]
     Active Substance: ROSUVASTATIN CALCIUM
     Dosage: UNK
  6. KARDEGIC [Concomitant]
     Active Substance: ASPIRIN LYSINE
     Dosage: UNK
  7. METFORMIN [Concomitant]
     Active Substance: METFORMIN HYDROCHLORIDE
     Dosage: UNK
  8. TAREG [Concomitant]
     Active Substance: VALSARTAN
     Dosage: UNK

REACTIONS (2)
  - Focal segmental glomerulosclerosis [Recovering/Resolving]
  - Renal impairment [Recovering/Resolving]

NARRATIVE: CASE EVENT DATE: 20150105
